FAERS Safety Report 14690018 (Version 1)
Quarter: 2018Q1

REPORT INFORMATION
  Report Type: Spontaneous
  Country: AR (occurrence: AR)
  Receive Date: 20180328
  Receipt Date: 20180328
  Transmission Date: 20180509
  Serious: Yes (Death, Hospitalization, Other)
  Sender: FDA-Public Use
  Company Number: AR-BAYER-2018-059789

PATIENT
  Age: 25 Year
  Sex: Female

DRUGS (1)
  1. STIVARGA [Suspect]
     Active Substance: REGORAFENIB
     Indication: HEPATOCELLULAR CARCINOMA
     Dosage: DAILY DOSE 160 MG FOR 3 WEEKS WITH A REST OF 1 WEEK
     Dates: start: 201608

REACTIONS (8)
  - Cerebral haemorrhage [Fatal]
  - Product use in unapproved indication [Unknown]
  - Off label use [Unknown]
  - Hepatocellular carcinoma [Not Recovered/Not Resolved]
  - Seizure [None]
  - Hepatitis [None]
  - Metastases to central nervous system [Fatal]
  - Skin reaction [Unknown]

NARRATIVE: CASE EVENT DATE: 201608
